FAERS Safety Report 5051615-1 (Version None)
Quarter: 2006Q3

REPORT INFORMATION
  Report Type: 
  Country: None (occurrence: None)
  Receive Date: 20060714
  Receipt Date: 20060706
  Transmission Date: 20061208
  Serious: Yes (Hospitalization)
  Sender: FDA-Public Use
  Company Number: GB-AVENTIS-200617152GDDC

PATIENT
  Age: 64 Year
  Sex: Female

DRUGS (2)
  1. METRONIDAZOLE [Suspect]
     Indication: ABSCESS
     Route: 048
     Dates: start: 20060511, end: 20060518
  2. CO-AMOXICLAV [Suspect]
     Indication: ABSCESS
     Route: 048
     Dates: start: 20060510, end: 20060517

REACTIONS (6)
  - ALANINE AMINOTRANSFERASE INCREASED [None]
  - ASPARTATE AMINOTRANSFERASE INCREASED [None]
  - GAMMA-GLUTAMYLTRANSFERASE INCREASED [None]
  - JAUNDICE [None]
  - LIVER FUNCTION TEST ABNORMAL [None]
  - PRURITUS GENERALISED [None]
